FAERS Safety Report 6290095-5 (Version None)
Quarter: 2009Q3

REPORT INFORMATION
  Report Type: 
  Country: None (occurrence: None)
  Receive Date: 20090730
  Receipt Date: 20081118
  Transmission Date: 20100115
  Serious: No
  Sender: FDA-Public Use
  Company Number: US-BRISTOL-MYERS SQUIBB COMPANY-14411409

PATIENT
  Age: 82 Year
  Sex: Male

DRUGS (2)
  1. COUMADIN [Suspect]
     Dosage: ENDO
  2. PLAVIX [Suspect]
     Route: 048
     Dates: start: 20080701

REACTIONS (2)
  - CONTUSION [None]
  - PAIN [None]
